FAERS Safety Report 8115455-9 (Version None)
Quarter: 2012Q1

REPORT INFORMATION
  Report Type: 
  Country: None (occurrence: None)
  Receive Date: 20120206
  Receipt Date: 20120131
  Transmission Date: 20120608
  Serious: Yes (Other)
  Sender: FDA-Public Use
  Company Number: US-SANOFI-AVENTIS-2012SA006476

PATIENT
  Age: 68 Year
  Sex: Male
  Weight: 108.86 kg

DRUGS (9)
  1. SINGULAIR [Concomitant]
  2. ATENOLOL [Concomitant]
  3. VITAMIN D [Concomitant]
  4. ALBUTEROL [Concomitant]
  5. ASPIRIN [Suspect]
  6. PLAVIX [Suspect]
     Indication: STENT PLACEMENT
     Route: 048
     Dates: start: 20110601
  7. VALSARTAN [Concomitant]
  8. PREVACID [Concomitant]
  9. SIMVASTATIN [Concomitant]

REACTIONS (2)
  - RETINAL DISORDER [None]
  - VISION BLURRED [None]
